FAERS Safety Report 9423309 (Version 1)
Quarter: 2013Q3

REPORT INFORMATION
  Report Type: Spontaneous
  Country: US (occurrence: US)
  Receive Date: 20130726
  Receipt Date: 20130726
  Transmission Date: 20140515
  Serious: No
  Sender: FDA-Public Use
  Company Number: US-PFIZER INC-2013218255

PATIENT
  Age: 61 Year
  Sex: Female
  Weight: 59.86 kg

DRUGS (10)
  1. NEURONTIN [Suspect]
     Indication: FIBROMYALGIA
     Dosage: UNK
  2. NEURONTIN [Suspect]
     Indication: PARAESTHESIA
  3. NEURONTIN [Suspect]
     Indication: BURNING SENSATION
  4. GABAPENTIN [Suspect]
     Indication: FIBROMYALGIA
     Dosage: 300 MG, 4X/DAY
     Dates: start: 201304
  5. GABAPENTIN [Suspect]
     Indication: PARAESTHESIA
  6. GABAPENTIN [Suspect]
     Indication: BURNING SENSATION
  7. SIMVASTATIN [Concomitant]
     Indication: BLOOD CHOLESTEROL INCREASED
     Dosage: 40 MG, 1X/DAY
  8. EFEXOR XR [Concomitant]
     Indication: DEPRESSION
     Dosage: UNK
  9. PRECISE [Concomitant]
     Indication: PARAESTHESIA
     Dosage: UNK
  10. PRECISE [Concomitant]
     Indication: BURNING SENSATION

REACTIONS (1)
  - Drug ineffective [Unknown]
